FAERS Safety Report 6056001-3 (Version None)
Quarter: 2009Q1

REPORT INFORMATION
  Report Type: 
  Country: None (occurrence: None)
  Receive Date: 20090126
  Receipt Date: 20090113
  Transmission Date: 20090719
  Serious: Yes (Hospitalization)
  Sender: FDA-Public Use
  Company Number: 107#03#2009-00100

PATIENT
  Age: 56 Year
  Sex: Male

DRUGS (4)
  1. CARVEDILOL [Suspect]
     Indication: HYPERTENSION
     Dosage: 12.5 MG TWICE ORAL
     Route: 048
     Dates: start: 20080430
  2. DIOVAN HCT [Suspect]
     Indication: HYPERTENSION
     Dosage: 160 MG VALSARTAN ORAL; 12.5 MG HYDROCHLOROTHIAZIDE ORAL
     Route: 048
     Dates: start: 20080210
  3. DIOVAN HCT [Suspect]
     Indication: HYPERTENSION
     Dosage: 160 MG VALSARTAN ORAL; 12.5 MG HYDROCHLOROTHIAZIDE ORAL
     Route: 048
     Dates: start: 20080210
  4. ASS HEXAL (TABLETS) (ACETYLSALICYLIC ACID) [Concomitant]

REACTIONS (3)
  - GROWING PAINS [None]
  - HYPERHIDROSIS [None]
  - MALAISE [None]
